FAERS Safety Report 9315900 (Version 1)
Quarter: 2013Q2

REPORT INFORMATION
  Report Type: Spontaneous
  Country: US (occurrence: US)
  Receive Date: 20130530
  Receipt Date: 20130530
  Transmission Date: 20140414
  Serious: No
  Sender: FDA-Public Use
  Company Number: US-009507513-1305USA016116

PATIENT
  Sex: Female

DRUGS (2)
  1. JANUVIA [Suspect]
     Dosage: UNK
     Route: 048
     Dates: start: 2013, end: 2013
  2. METFORMIN [Concomitant]

REACTIONS (1)
  - Nausea [Recovered/Resolved]
